FAERS Safety Report 8479222-9 (Version None)
Quarter: 2012Q2

REPORT INFORMATION
  Report Type: 
  Country: None (occurrence: None)
  Receive Date: 20120629
  Receipt Date: 20120620
  Transmission Date: 20120825
  Serious: Yes (Hospitalization)
  Sender: FDA-Public Use
  Company Number: US-GLAXOSMITHKLINE-A0785896A

PATIENT
  Age: 65 Year
  Sex: Male

DRUGS (7)
  1. PEPCID [Concomitant]
  2. ZOCOR [Concomitant]
  3. TARKA [Concomitant]
  4. ACCUPRIL [Concomitant]
  5. NEURONTIN [Concomitant]
  6. AVANDIA [Suspect]
     Indication: BLOOD GLUCOSE INCREASED
     Dosage: 4MG PER DAY
     Route: 048
     Dates: start: 20020401, end: 20061113
  7. NORVASC [Concomitant]

REACTIONS (2)
  - BASAL GANGLIA INFARCTION [None]
  - CEREBROVASCULAR ACCIDENT [None]
